FAERS Safety Report 9290429 (Version 2)
Quarter: 2013Q2

REPORT INFORMATION
  Report Type: Spontaneous
  Country: US (occurrence: US)
  Receive Date: 20130515
  Receipt Date: 20130530
  Transmission Date: 20140414
  Serious: Yes (Disabling)
  Sender: FDA-Public Use
  Company Number: US-PFIZER INC-2013146479

PATIENT
  Age: 50 Year
  Sex: Male
  Weight: 111 kg

DRUGS (13)
  1. LIPITOR [Suspect]
     Indication: BLOOD CHOLESTEROL INCREASED
     Dosage: 40 MG, DAILY
     Dates: start: 2005
  2. NEURONTIN [Suspect]
     Indication: NEURALGIA
     Dosage: 300 MG, 2X/DAY
  3. NEURONTIN [Suspect]
     Indication: BURNING SENSATION
  4. ASPIRIN [Concomitant]
     Dosage: 81 MG, DAILY
  5. HYDROCHLOROTHIAZIDE [Concomitant]
     Dosage: 25 MG, DAILY
  6. METOPROLOL TARTRATE [Concomitant]
     Dosage: 50 MG, 2X/DAY
  7. LISINOPRIL [Concomitant]
     Dosage: 20 MG, DAILY
  8. GLIMEPIRIDE [Concomitant]
     Dosage: 2 MG, UNK
  9. AMLODIPINE BESILATE [Concomitant]
     Dosage: 10 MG, DAILY
  10. OMEPRAZOLE [Concomitant]
     Dosage: 40 MG, DAILY
  11. CLOPIDOGREL BISULFATE [Concomitant]
     Dosage: 75 MG, DAILY
  12. METFORMIN HYDROCHLORIDE [Concomitant]
     Dosage: 500 MG, DAILY
  13. VITAMIN B COMPLEX [Concomitant]
     Dosage: UNK, DAILY

REACTIONS (1)
  - Spinal column stenosis [Not Recovered/Not Resolved]
